FAERS Safety Report 9439041 (Version 1)
Quarter: 2013Q3

REPORT INFORMATION
  Report Type: Spontaneous
  Country: IT (occurrence: IT)
  Receive Date: 20130802
  Receipt Date: 20130802
  Transmission Date: 20140515
  Serious: Yes (Other)
  Sender: FDA-Public Use
  Company Number: IT-BAXTER-2013BAX030636

PATIENT
  Age: 40 Year
  Sex: Female

DRUGS (2)
  1. ENDOXAN BAXTER [Suspect]
     Indication: PROPHYLAXIS AGAINST TRANSPLANT REJECTION
     Route: 042
     Dates: start: 19930601, end: 19930701
  2. ENDOXAN BAXTER [Suspect]
     Indication: CHEMOTHERAPY

REACTIONS (1)
  - Breast cancer [Unknown]
